FAERS Safety Report 6882953-5 (Version None)
Quarter: 2010Q3

REPORT INFORMATION
  Report Type: 
  Country: None (occurrence: None)
  Receive Date: 20100702
  Receipt Date: 20090602
  Transmission Date: 20110219
  Serious: Yes (Other)
  Sender: FDA-Public Use
  Company Number: 2009187421

PATIENT

DRUGS (1)
  1. ZOLOFT [Suspect]

REACTIONS (5)
  - ABDOMINAL PAIN [None]
  - HEADACHE [None]
  - LIVER DISORDER [None]
  - OVERDOSE [None]
  - VISION BLURRED [None]
